FAERS Safety Report 5615216-6 (Version None)
Quarter: 2008Q1

REPORT INFORMATION
  Report Type: 
  Country: None (occurrence: None)
  Receive Date: 20080205
  Receipt Date: 20080205
  Transmission Date: 20080703
  Serious: No
  Sender: FDA-Public Use
  Company Number: None

PATIENT
  Age: 34 Year
  Sex: Female
  Weight: 72.5755 kg

DRUGS (1)
  1. CIPRO [Suspect]
     Indication: URINARY TRACT INFECTION
     Dosage: 1000 MG DAILY PO
     Route: 048
     Dates: start: 20080123, end: 20080126

REACTIONS (4)
  - ANXIETY [None]
  - MUSCLE SPASMS [None]
  - MYALGIA [None]
  - TREMOR [None]
